FAERS Safety Report 10802895 (Version 4)
Quarter: 2015Q3

REPORT INFORMATION
  Report Type: Spontaneous
  Country: US (occurrence: US)
  Receive Date: 20150217
  Receipt Date: 20150803
  Transmission Date: 20151125
  Serious: Yes (Hospitalization, Disabling, Other)
  Sender: FDA-Public Use
  Company Number: US-ASTELLAS-2015US000575

PATIENT
  Age: 82 Year
  Sex: Male

DRUGS (3)
  1. XTANDI [Suspect]
     Active Substance: ENZALUTAMIDE
     Indication: HEPATIC CANCER
     Route: 048
     Dates: start: 20141210, end: 201506
  2. XTANDI [Suspect]
     Active Substance: ENZALUTAMIDE
     Indication: PROSTATE CANCER
  3. XTANDI [Suspect]
     Active Substance: ENZALUTAMIDE
     Indication: PROSTATE CANCER

REACTIONS (11)
  - Bone cancer [Unknown]
  - Spinal cord neoplasm [Unknown]
  - Gait disturbance [Unknown]
  - Erythema [Unknown]
  - Nausea [Unknown]
  - Skin disorder [Unknown]
  - Myocardial infarction [Unknown]
  - Malaise [Unknown]
  - Pharyngeal oedema [Not Recovered/Not Resolved]
  - Foreign body [Unknown]
  - Asthenia [Unknown]

NARRATIVE: CASE EVENT DATE: 20150419
